FAERS Safety Report 16703980 (Version 1)
Quarter: 2019Q3

REPORT INFORMATION
  Report Type: Spontaneous
  Country: FR (occurrence: FR)
  Receive Date: 20190814
  Receipt Date: 20190814
  Transmission Date: 20191004
  Serious: Yes (Other)
  Sender: FDA-Public Use
  Company Number: FR-MYLANLABS-2019M1075153

PATIENT
  Age: 55 Year
  Sex: Male
  Weight: 160 kg

DRUGS (1)
  1. TERBINAFINE MYLAN 250 MG,COMPRIM? S?CABLE [Suspect]
     Active Substance: TERBINAFINE
     Indication: ONYCHOMYCOSIS
     Dosage: 1 DOSAGE FORM, QD
     Route: 048
     Dates: start: 20190114, end: 20190121

REACTIONS (5)
  - Abdominal pain [Recovered/Resolved]
  - Rash [Recovering/Resolving]
  - Urticaria [Recovering/Resolving]
  - Product substitution issue [Recovering/Resolving]
  - Diarrhoea [Recovered/Resolved]

NARRATIVE: CASE EVENT DATE: 20190115
